FAERS Safety Report 10214579 (Version 1)
Quarter: 2014Q2

REPORT INFORMATION
  Report Type: Spontaneous
  Country: US (occurrence: None)
  Receive Date: 20140602
  Receipt Date: 20140602
  Transmission Date: 20141212
  Serious: Yes (Other)
  Sender: FDA-Public Use
  Company Number: None

PATIENT
  Age: 79 Year
  Sex: Male

DRUGS (1)
  1. IMBRUVICA [Suspect]
     Dosage: 140 MG TAKE 3 DAILY ORAL
     Route: 048
     Dates: start: 20140508

REACTIONS (3)
  - Erythema [None]
  - Skin warm [None]
  - Herpes zoster [None]
